FAERS Safety Report 4748445-4 (Version None)
Quarter: 2005Q3

REPORT INFORMATION
  Report Type: 
  Country: None (occurrence: None)
  Receive Date: 20050818
  Receipt Date: 20050414
  Transmission Date: 20060218
  Serious: No
  Sender: FDA-Public Use
  Company Number: MOBN20050004

PATIENT
  Age: 25 Year
  Sex: Female
  Weight: 63.5036 kg

DRUGS (3)
  1. MOBAN [Suspect]
     Indication: SCHIZOAFFECTIVE DISORDER
     Dosage: 60 MG DAILY PO
     Route: 048
     Dates: start: 20020601
  2. ZOLOFT [Concomitant]
  3. DEPAKOTE [Concomitant]

REACTIONS (1)
  - NYSTAGMUS [None]
